FAERS Safety Report 9429563 (Version 1)
Quarter: 2013Q3

REPORT INFORMATION
  Report Type: Report from Study
  Country: US (occurrence: US)
  Receive Date: 20130730
  Receipt Date: 20130730
  Transmission Date: 20140515
  Serious: No
  Sender: FDA-Public Use
  Company Number: US-ABBOTT-13P-163-1062902-00

PATIENT
  Sex: Female
  Weight: 54.48 kg

DRUGS (6)
  1. NIASPAN (COATED) [Suspect]
     Indication: HIGH DENSITY LIPOPROTEIN DECREASED
  2. NIASPAN (COATED) [Suspect]
     Indication: LOW DENSITY LIPOPROTEIN INCREASED
  3. THYROID MEDICATION [Concomitant]
     Indication: PRODUCT USED FOR UNKNOWN INDICATION
  4. THYROID MEDICATION [Concomitant]
  5. MEDICATION FOR ACID REFLUX/STOMACH ISSUES [Concomitant]
     Indication: GASTROOESOPHAGEAL REFLUX DISEASE
  6. MEDICATION FOR ACID REFLUX/STOMACH ISSUES [Concomitant]
     Indication: GASTRIC DISORDER

REACTIONS (3)
  - Thyroid function test abnormal [Not Recovered/Not Resolved]
  - Flushing [Recovered/Resolved]
  - Low density lipoprotein increased [Not Recovered/Not Resolved]
